FAERS Safety Report 7323587-8 (Version None)
Quarter: 2011Q1

REPORT INFORMATION
  Report Type: 
  Country: None (occurrence: None)
  Receive Date: 20110301
  Receipt Date: 20110223
  Transmission Date: 20110831
  Serious: Yes (Death, Life-Threatening, Hospitalization)
  Sender: FDA-Public Use
  Company Number: JP-PFIZER INC-2010176893

PATIENT
  Age: 71 Year
  Sex: Male
  Weight: 61 kg

DRUGS (7)
  1. SUTENT [Suspect]
     Indication: RENAL CELL CARCINOMA
     Dosage: 50 MG, 1X/DAY
     Route: 048
     Dates: start: 20101116, end: 20101209
  2. CALONAL [Concomitant]
     Indication: CANCER PAIN
     Dosage: 400 MG, 3X/DAY
     Route: 048
     Dates: start: 20101106, end: 20101210
  3. OXYCONTIN [Concomitant]
     Indication: CANCER PAIN
     Dosage: UNK MG, 2X/DAY
     Route: 048
     Dates: start: 20100501, end: 20101210
  4. FENTANYL [Concomitant]
     Indication: CANCER PAIN
     Dosage: 4.2 MG, UNK
     Route: 062
     Dates: start: 20101016
  5. MOBIC [Suspect]
     Indication: CANCER PAIN
     Dosage: 15 MG, 1X/DAY
     Route: 048
     Dates: start: 20101106, end: 20101210
  6. FENTANYL [Concomitant]
     Dosage: 16.8 MG, UNK
     Route: 062
     Dates: start: 20101125, end: 20110113
  7. MUCODYNE [Concomitant]
     Indication: EMPHYSEMA
     Dosage: 500 MG, 3X/DAY
     Route: 048
     Dates: start: 20020101, end: 20101210

REACTIONS (5)
  - RENAL CELL CARCINOMA [None]
  - DISEASE PROGRESSION [None]
  - RHABDOMYOLYSIS [None]
  - GASTROINTESTINAL PERFORATION [None]
  - DISSEMINATED INTRAVASCULAR COAGULATION [None]
